FAERS Safety Report 14157702 (Version 1)
Quarter: 2017Q4

REPORT INFORMATION
  Report Type: Spontaneous
  Country: US (occurrence: US)
  Receive Date: 20171103
  Receipt Date: 20171103
  Transmission Date: 20180321
  Serious: Yes (Other)
  Sender: FDA-Public Use
  Company Number: US-009507513-1710USA013101

PATIENT
  Sex: Female

DRUGS (1)
  1. NEXPLANON [Suspect]
     Active Substance: ETONOGESTREL
     Indication: CONTRACEPTION
     Dosage: 1 IMPLANT, IN ARM
     Route: 059
     Dates: start: 20161006

REACTIONS (5)
  - Unintended pregnancy [Unknown]
  - Pain in extremity [Unknown]
  - Back pain [Unknown]
  - Pregnancy with implant contraceptive [Unknown]
  - Adverse event [Unknown]

NARRATIVE: CASE EVENT DATE: 2017
